FAERS Safety Report 5824284-8 (Version None)
Quarter: 2008Q3

REPORT INFORMATION
  Report Type: 
  Country: None (occurrence: None)
  Receive Date: 20080722
  Receipt Date: 20080709
  Transmission Date: 20090109
  Serious: Yes (Other)
  Sender: FDA-Public Use
  Company Number: DAB-2008-00039

PATIENT
  Age: 50 Year
  Sex: Female

DRUGS (5)
  1. EPIRUBICIN HCL [Suspect]
     Indication: BREAST CANCER
  2. LEVOTHYROXINE SODIUM [Suspect]
  3. NEULASTA [Suspect]
     Indication: BREAST CANCER
  4. DEXAMETHASONE TAB [Concomitant]
  5. DOMPERIDONE (DOMPERIDONE) [Concomitant]

REACTIONS (10)
  - AGITATION [None]
  - BLOOD THYROID STIMULATING HORMONE DECREASED [None]
  - BODY TEMPERATURE INCREASED [None]
  - BURNING SENSATION [None]
  - DRUG INTERACTION [None]
  - EMOTIONAL DISTRESS [None]
  - FORMICATION [None]
  - HEART RATE INCREASED [None]
  - INSOMNIA [None]
  - METABOLIC DISORDER [None]
